FAERS Safety Report 12272895 (Version 2)
Quarter: 2016Q2

REPORT INFORMATION
  Report Type: Spontaneous
  Country: ES (occurrence: ES)
  Receive Date: 20160415
  Receipt Date: 20160427
  Transmission Date: 20160815
  Serious: Yes (Hospitalization)
  Sender: FDA-Public Use
  Company Number: ES-UNICHEM LABORATORIES LIMITED-UCM201604-000056

PATIENT
  Age: 8 Year
  Sex: Male

DRUGS (1)
  1. DIVALPROEX SODIUM. [Suspect]
     Active Substance: DIVALPROEX SODIUM
     Indication: MYOCLONIC EPILEPSY
     Route: 042

REACTIONS (2)
  - Tonic convulsion [Recovered/Resolved]
  - Status epilepticus [Recovered/Resolved]
